FAERS Safety Report 8691596 (Version 2)
Quarter: 2013Q4

REPORT INFORMATION
  Report Type: Spontaneous
  Country: JP (occurrence: JP)
  Receive Date: 20120730
  Receipt Date: 20131031
  Transmission Date: 20140711
  Serious: Yes (Other)
  Sender: FDA-Public Use
  Company Number: JP-009507513-1207JPN009338

PATIENT
  Age: 2 Year
  Sex: 0

DRUGS (1)
  1. SINGULAIR TABLETS 5MG [Suspect]
     Dosage: 20 MG, ONCE
     Route: 048

REACTIONS (2)
  - Accidental overdose [Unknown]
  - Accidental exposure to product by child [Unknown]
